FAERS Safety Report 8082928-7 (Version None)
Quarter: 2012Q1

REPORT INFORMATION
  Report Type: 
  Country: None (occurrence: None)
  Receive Date: 20120127
  Receipt Date: 20110308
  Transmission Date: 20120608
  Serious: No
  Sender: FDA-Public Use
  Company Number: US-ABBOTT-11P-163-0710088-00

PATIENT
  Age: 63 Year
  Sex: Female

DRUGS (7)
  1. METFFORMIN HYDROCHLORIDE [Concomitant]
     Indication: DIABETES MELLITUS
  2. BYSTOLIC [Concomitant]
     Indication: CARDIAC DISORDER
  3. PRILOSEC [Concomitant]
     Indication: GASTROOESOPHAGEAL REFLUX DISEASE
  4. DIOVAN [Concomitant]
     Indication: HYPERTENSION
  5. PRADAXA [Concomitant]
     Indication: ANTICOAGULANT THERAPY
  6. HUMIRA [Suspect]
     Indication: CROHN'S DISEASE
     Dates: start: 20100901
  7. ASACOL [Concomitant]
     Indication: CROHN'S DISEASE

REACTIONS (1)
  - RASH [None]
